FAERS Safety Report 5002422-7 (Version None)
Quarter: 2006Q2

REPORT INFORMATION
  Report Type: 
  Country: None (occurrence: None)
  Receive Date: 20060510
  Receipt Date: 20060420
  Transmission Date: 20061013
  Serious: Yes (Hospitalization)
  Sender: FDA-Public Use
  Company Number: 2006-00661

PATIENT
  Age: 77 Year
  Sex: Male

DRUGS (5)
  1. VELCADE [Suspect]
     Indication: B-CELL LYMPHOMA
     Dosage: 1.30 MG/M2, IV DRIP
     Route: 041
     Dates: start: 20060209
  2. CYCLOPHOSPHAMIDE [Suspect]
     Indication: B-CELL LYMPHOMA
     Dates: start: 20060209
  3. DOXORUBICIN (DOXORUBICIN) [Suspect]
     Indication: B-CELL LYMPHOMA
     Dates: start: 20060209
  4. VINCRISTINE [Suspect]
     Indication: B-CELL LYMPHOMA
     Dates: start: 20060209
  5. PREDNISONE TAB [Suspect]
     Indication: B-CELL LYMPHOMA
     Dates: start: 20060209

REACTIONS (2)
  - MUCOSAL INFLAMMATION [None]
  - PYREXIA [None]
